FAERS Safety Report 10492919 (Version 1)
Quarter: 2014Q4

REPORT INFORMATION
  Report Type: Spontaneous
  Country: CA (occurrence: CA)
  Receive Date: 20141002
  Receipt Date: 20141002
  Transmission Date: 20150528
  Serious: Yes (Hospitalization, Other)
  Sender: FDA-Public Use
  Company Number: PHHY2014CA127634

PATIENT
  Age: 69 Year
  Sex: Female

DRUGS (35)
  1. DOMPERIDONE [Suspect]
     Active Substance: DOMPERIDONE
     Indication: IRRITABLE BOWEL SYNDROME
     Dosage: 30 MG, QID
     Route: 065
  2. PSYLLIUM [Suspect]
     Active Substance: PLANTAGO SEED
     Indication: LAXATIVE SUPPORTIVE CARE
     Dosage: 1 DF, BID TWICE DAILY AS NEEDED FROM YEARS
     Route: 065
  3. SALBUTAMOL [Concomitant]
     Active Substance: ALBUTEROL
     Indication: PRODUCT USED FOR UNKNOWN INDICATION
     Dosage: 5 DF, QD
     Route: 065
  4. CALCIUM [Concomitant]
     Active Substance: CALCIUM
     Indication: PRODUCT USED FOR UNKNOWN INDICATION
     Route: 065
  5. LOPERAMIDE [Suspect]
     Active Substance: LOPERAMIDE
     Indication: IRRITABLE BOWEL SYNDROME
     Dosage: 2 MG, Q5H
     Route: 065
  6. PINAVERIUM [Concomitant]
     Active Substance: PINAVERIUM BROMIDE
     Indication: DIARRHOEA
  7. CALCIUM CARBONATE. [Concomitant]
     Active Substance: CALCIUM CARBONATE
     Indication: PRODUCT USED FOR UNKNOWN INDICATION
     Route: 065
  8. ACETAMINOPHEN. [Concomitant]
     Active Substance: ACETAMINOPHEN
     Indication: HEADACHE
     Dosage: 1 DF, UNK
     Route: 065
  9. PHENYLEPHRINE HYDROCHLORIDE. [Concomitant]
     Active Substance: PHENYLEPHRINE HYDROCHLORIDE
     Indication: PRODUCT USED FOR UNKNOWN INDICATION
     Route: 065
  10. VITAMIN D3 [Concomitant]
     Active Substance: CHOLECALCIFEROL
     Indication: PRODUCT USED FOR UNKNOWN INDICATION
     Route: 065
  11. AMITRIPTYLINE [Suspect]
     Active Substance: AMITRIPTYLINE
     Dosage: 150 MG, QD
     Route: 065
     Dates: start: 1994
  12. CLOPIDOGREL [Concomitant]
     Active Substance: CLOPIDOGREL BISULFATE
     Indication: PROPHYLAXIS
     Dosage: 75 MG, QD
     Route: 065
  13. CAFFEINE. [Concomitant]
     Active Substance: CAFFEINE
     Indication: OESOPHAGEAL SPASM
     Route: 065
  14. LEVOTHYROXINE [Concomitant]
     Active Substance: LEVOTHYROXINE
     Indication: HYPOTHYROIDISM
     Dosage: 0.088 UG, UNK
     Route: 065
  15. RAMIPRIL. [Concomitant]
     Active Substance: RAMIPRIL
     Dosage: 5 MG, QD
     Route: 065
  16. ACETYLSALICYLIC ACID [Concomitant]
     Active Substance: ASPIRIN
     Indication: OESOPHAGEAL SPASM
     Route: 065
  17. LANSOPRAZOLE. [Concomitant]
     Active Substance: LANSOPRAZOLE
     Dosage: 30 MG, BID
     Route: 065
  18. CHLORDIAZEPOXIDE [Suspect]
     Active Substance: CHLORDIAZEPOXIDE
     Indication: IRRITABLE BOWEL SYNDROME
     Dosage: 5 MG, UNK
     Route: 065
  19. BUTALBITAL [Concomitant]
     Active Substance: BUTALBITAL
     Indication: OESOPHAGEAL SPASM
     Route: 065
  20. ERYTHROMYCIN. [Suspect]
     Active Substance: ERYTHROMYCIN
     Indication: CONSTIPATION
     Dosage: 40 MG, QID
     Route: 065
  21. DOMPERIDONE [Suspect]
     Active Substance: DOMPERIDONE
     Indication: CONSTIPATION
  22. AMITRIPTYLINE [Suspect]
     Active Substance: AMITRIPTYLINE
     Indication: DEPRESSION
     Dosage: 200 MG, QD
     Route: 065
     Dates: start: 1994
  23. LACTULOSE. [Suspect]
     Active Substance: LACTULOSE
     Indication: LAXATIVE SUPPORTIVE CARE
     Dosage: 4 DF, QD AS NEEDED
     Route: 065
  24. LOPERAMIDE [Suspect]
     Active Substance: LOPERAMIDE
     Indication: DIARRHOEA
     Dosage: 2 MG, Q6H
     Route: 065
  25. PSYLLIUM [Suspect]
     Active Substance: PLANTAGO SEED
     Dosage: 1 DF, QD
     Route: 065
  26. RAMIPRIL. [Concomitant]
     Active Substance: RAMIPRIL
     Indication: HYPERTENSION
     Dosage: 2.5 MG, QD
     Route: 065
  27. PINAVERIUM [Concomitant]
     Active Substance: PINAVERIUM BROMIDE
     Indication: IRRITABLE BOWEL SYNDROME
     Dosage: 50 MG, TID
     Route: 065
  28. LANSOPRAZOLE. [Concomitant]
     Active Substance: LANSOPRAZOLE
     Indication: DYSPEPSIA
     Dosage: 30 MG, QD
     Route: 065
  29. BUDESONIDE W/FORMOTEROL [Concomitant]
     Indication: ASTHMA
     Dosage: 2 DF, UNK
     Route: 065
  30. ERYTHROMYCIN. [Suspect]
     Active Substance: ERYTHROMYCIN
     Indication: IRRITABLE BOWEL SYNDROME
     Dosage: 250 MG, TID
     Route: 065
  31. CLIDINIUM [Suspect]
     Active Substance: CLIDINIUM
     Indication: IRRITABLE BOWEL SYNDROME
     Dosage: 2.5 MG, 2-3 TIMES DAILY
     Route: 065
  32. CODEINE [Concomitant]
     Active Substance: CODEINE
     Indication: OESOPHAGEAL SPASM
     Dosage: 1 DF, UNK
     Route: 065
  33. CODEINE [Concomitant]
     Active Substance: CODEINE
     Indication: HEADACHE
  34. LORATADINE. [Concomitant]
     Active Substance: LORATADINE
     Indication: HYPERSENSITIVITY
     Route: 065
  35. TERBUTALINE [Concomitant]
     Active Substance: TERBUTALINE
     Indication: PRODUCT USED FOR UNKNOWN INDICATION
     Dosage: 2 DF, PRN
     Route: 065

REACTIONS (13)
  - Diarrhoea [Recovering/Resolving]
  - Emotional disorder [Recovering/Resolving]
  - Generalised tonic-clonic seizure [Recovering/Resolving]
  - Incorrect dose administered [Unknown]
  - Cognitive disorder [Recovering/Resolving]
  - Drug administration error [Unknown]
  - Electrocardiogram QT prolonged [Recovering/Resolving]
  - Dementia [Recovering/Resolving]
  - Drug withdrawal syndrome [Recovering/Resolving]
  - Constipation [Recovering/Resolving]
  - Fall [Recovering/Resolving]
  - Fatigue [Recovering/Resolving]
  - Dizziness [Recovering/Resolving]
